FAERS Safety Report 7751616-6 (Version None)
Quarter: 2011Q3

REPORT INFORMATION
  Report Type: 
  Country: None (occurrence: None)
  Receive Date: 20110914
  Receipt Date: 20110913
  Transmission Date: 20111222
  Serious: Yes (Hospitalization)
  Sender: FDA-Public Use
  Company Number: PHEH2010US00574

PATIENT
  Sex: Female

DRUGS (10)
  1. LASIX [Concomitant]
     Dosage: 80 MG, BID
  2. EXJADE [Suspect]
     Dosage: 250 MG, QD
     Route: 048
  3. FOLIC ACID [Concomitant]
     Dosage: 1 MG, QD
  4. METOPROLOL [Concomitant]
     Dosage: 1.5 MG, QD
     Route: 048
  5. SYNTHROID [Concomitant]
     Dosage: 137 UG, QD
  6. EXJADE [Suspect]
     Dosage: UNK UKN, UNK
     Route: 048
     Dates: start: 20101008
  7. EXJADE [Suspect]
     Indication: NEPHROGENIC ANAEMIA
     Dosage: 1000 MG, QD
     Route: 048
  8. ALENDRONATE SODIUM [Concomitant]
     Dosage: 70 MG, QW
     Route: 048
  9. COUMADIN [Concomitant]
     Dosage: 5 MG, QD
  10. EXJADE [Suspect]
     Indication: IRON OVERLOAD
     Dosage: 500 MG, QD
     Route: 048
     Dates: start: 20091207, end: 20100721

REACTIONS (4)
  - ERUCTATION [None]
  - RASH [None]
  - CARDIAC FAILURE CONGESTIVE [None]
  - RENAL DISORDER [None]
